FAERS Safety Report 9648916 (Version 3)
Quarter: 2014Q2

REPORT INFORMATION
  Report Type: Spontaneous
  Country: US (occurrence: None)
  Receive Date: 20131018
  Receipt Date: 20140421
  Transmission Date: 20141212
  Serious: No
  Sender: FDA-Public Use
  Company Number: AEGR000107

PATIENT
  Age: 66 Year
  Sex: Male
  Weight: 91.6 kg

DRUGS (6)
  1. JUXTAPID [Suspect]
     Indication: TYPE IIA HYPERLIPIDAEMIA
     Route: 048
     Dates: start: 20130607
  2. VYTORIN (EZETIMIBE, SIMVASTATIN) [Concomitant]
  3. ATENOLOL (ATENOLOL) [Concomitant]
  4. ALDACTONE (SPIRONOLACTONE) [Concomitant]
  5. ASPIRIN (ACETYLSALICYLIC ACID) [Concomitant]
  6. DOXAZOSIN (DOXAZOSIN MESILATE) [Concomitant]

REACTIONS (3)
  - Arthralgia [None]
  - Blood creatine phosphokinase increased [None]
  - Myalgia [None]
